FAERS Safety Report 21381040 (Version 1)
Quarter: 2022Q3

REPORT INFORMATION
  Report Type: Spontaneous
  Country: CN (occurrence: CN)
  Receive Date: 20220927
  Receipt Date: 20220927
  Transmission Date: 20221026
  Serious: Yes (Hospitalization, Other)
  Sender: FDA-Public Use
  Company Number: CN-009507513-2209CHN007663

PATIENT
  Age: 37 Year
  Sex: Male
  Weight: 65 kg

DRUGS (6)
  1. CILASTATIN SODIUM\IMIPENEM [Suspect]
     Active Substance: CILASTATIN SODIUM\IMIPENEM
     Indication: Pancreatitis acute
     Dosage: 1 GRAM, TID
     Route: 041
     Dates: start: 20211113, end: 20211117
  2. CILASTATIN SODIUM\IMIPENEM [Suspect]
     Active Substance: CILASTATIN SODIUM\IMIPENEM
     Indication: Anti-infective therapy
     Dosage: 1 G, Q12H
     Route: 041
     Dates: start: 20211118, end: 20211202
  3. CILASTATIN SODIUM\IMIPENEM [Suspect]
     Active Substance: CILASTATIN SODIUM\IMIPENEM
     Dosage: 1 GRAM, Q12H
     Route: 041
     Dates: start: 20211206, end: 20211226
  4. VANCOMYCIN HYDROCHLORIDE [Suspect]
     Active Substance: VANCOMYCIN HYDROCHLORIDE
     Indication: Clostridium difficile infection
     Dosage: 125 MILLIGRAM (25 ML), Q6H
     Route: 048
     Dates: start: 20211224
  5. VANCOMYCIN HYDROCHLORIDE [Concomitant]
     Active Substance: VANCOMYCIN HYDROCHLORIDE
     Indication: Anti-infective therapy
     Dosage: 1 GRAM, Q12H
     Route: 041
     Dates: start: 20211118, end: 20211202
  6. VANCOMYCIN HYDROCHLORIDE [Concomitant]
     Active Substance: VANCOMYCIN HYDROCHLORIDE
     Dosage: 1 GRAM, Q12H
     Route: 041
     Dates: start: 20211206, end: 20211216

REACTIONS (9)
  - Clostridium difficile infection [Recovered/Resolved]
  - Debridement [Unknown]
  - Debridement [Unknown]
  - Headache [Recovered/Resolved]
  - Inflammation [Recovered/Resolved]
  - Hypoaesthesia oral [Unknown]
  - Dry mouth [Unknown]
  - Ageusia [Unknown]
  - Fungal test positive [Unknown]

NARRATIVE: CASE EVENT DATE: 20211125
